FAERS Safety Report 18946636 (Version 1)
Quarter: 2021Q1

REPORT INFORMATION
  Report Type: Spontaneous
  Country: US (occurrence: US)
  Receive Date: 20210226
  Receipt Date: 20210226
  Transmission Date: 20210420
  Serious: No
  Sender: FDA-Public Use
  Company Number: US-ROCHE-2728550

PATIENT
  Age: 72 Year
  Sex: Male

DRUGS (4)
  1. ENSPRYNG [Suspect]
     Active Substance: SATRALIZUMAB-MWGE
  2. ENSPRYNG [Suspect]
     Active Substance: SATRALIZUMAB-MWGE
     Indication: NEUROMYELITIS OPTICA SPECTRUM DISORDER
     Dosage: FIRST DOSE IS 120 MG, SECOND DOSE IS 2 WEEKS LATER, AND IS 120 MG, THIRD DOSE IS 2 WEEKS AFTER SECON
     Route: 058
     Dates: start: 20201205
  3. ENSPRYNG [Suspect]
     Active Substance: SATRALIZUMAB-MWGE
  4. ENSPRYNG [Suspect]
     Active Substance: SATRALIZUMAB-MWGE

REACTIONS (2)
  - Accidental underdose [Unknown]
  - No adverse event [Unknown]

NARRATIVE: CASE EVENT DATE: 20201205
